FAERS Safety Report 10343979 (Version 1)
Quarter: 2014Q3

REPORT INFORMATION
  Report Type: Spontaneous
  Country: ES (occurrence: None)
  Receive Date: 20140724
  Receipt Date: 20140724
  Transmission Date: 20150326
  Serious: Yes (Other)
  Sender: FDA-Public Use
  Company Number: 2014-3684

PATIENT
  Age: 26 Year
  Sex: Male

DRUGS (3)
  1. IDEBENONE (IDEBENONE) [Concomitant]
  2. INCRELEX [Suspect]
     Active Substance: MECASERMIN
     Indication: FRIEDREICH^S ATAXIA
     Dosage: 100 UG/KG (50 UG/KG, 2 IN 1 D)
     Route: 058
  3. INCRELEX [Suspect]
     Active Substance: MECASERMIN
     Indication: OFF LABEL USE
     Dosage: 100 UG/KG (50 UG/KG, 2 IN 1 D)
     Route: 058

REACTIONS (2)
  - Secretory adenoma of pituitary [None]
  - Off label use [None]
